FAERS Safety Report 19769745 (Version 1)
Quarter: 2021Q3

REPORT INFORMATION
  Report Type: Spontaneous
  Country: NL (occurrence: NL)
  Receive Date: 20210831
  Receipt Date: 20210831
  Transmission Date: 20211014
  Serious: Yes (Hospitalization)
  Sender: FDA-Public Use
  Company Number: NL-MYLANLABS-2021M1056610

PATIENT
  Sex: Male
  Weight: 76.4 kg

DRUGS (23)
  1. HALOPERIDOL. [Concomitant]
     Active Substance: HALOPERIDOL
     Dosage: 1 MILLIGRAM, QD (ORAAL, 1DD OM 20:00)
     Route: 048
  2. ACETYLSALICYLZUUR [Concomitant]
     Active Substance: ASPIRIN
     Dosage: 80 MILLIGRAM, QD (80 MG ORAAL 1 DD1)
     Route: 048
  3. BISOPROLOL [Concomitant]
     Active Substance: BISOPROLOL
     Dosage: 12.5 MILLIGRAM, QD (1,25 MG, ORAAL, 1DD)
     Route: 048
  4. PARACETAMOL [Concomitant]
     Active Substance: ACETAMINOPHEN
     Dosage: 1000 MILLIGRAM, Q8H (1.000 MG, ORAAL, 3DD)
     Route: 048
  5. MOVICOLON [Concomitant]
     Active Substance: POLYETHYLENE GLYCOL 3350\POTASSIUM CHLORIDE\SODIUM BICARBONATE\SODIUM CHLORIDE
     Dosage: 1 DOSAGE FORM, BID (1 SACHET, ORAAL, 2DD)
     Route: 048
  6. TAMSULOSINE                        /01280301/ [Concomitant]
     Active Substance: TAMSULOSIN
     Dosage: 0,4 MG, ORAAL, TNO STOP,
     Route: 048
  7. PANTOPRAZOL                        /01263201/ [Concomitant]
     Active Substance: PANTOPRAZOLE
     Dosage: 40 MILLIGRAM, QD (40 MG, ORAAL, 1DD)
     Route: 048
  8. CASPOFUNGIN [Suspect]
     Active Substance: CASPOFUNGIN
     Indication: SYSTEMIC CANDIDA
     Dosage: 70 MILLIGRAM (OPLAADDOSERING VAN 70MG I.V)
     Route: 042
     Dates: start: 20210227
  9. MICROLAX                           /01109601/ [Concomitant]
     Dosage: 5 MILLILITER (5 ML, RECTAAL, EENMALIG)
     Route: 054
  10. OXYCODON [Concomitant]
     Active Substance: OXYCODONE
     Dosage: 5 MILLIGRAM, QD (5 MG, ORAAL, 1DD OM 20:00)
     Route: 048
  11. NOVORAPID [Concomitant]
     Active Substance: INSULIN ASPART
     Dosage: 0?10 IE, 0?10 IE, SUBCUTAAN, ZN 4DD,
     Route: 058
  12. NATRIUMCHLORIDE [Concomitant]
     Active Substance: SODIUM CHLORIDE
     Dosage: 500 MILLILITER, QD
     Route: 042
  13. METAMIZOL                          /06276701/ [Concomitant]
     Active Substance: METAMIZOLE
     Dosage: 1000 MILLIGRAM, Q6H (1.000 MG, ORAAL, ELKE 6U)
     Route: 048
  14. FRAXIPARINE [Concomitant]
     Active Substance: NADROPARIN CALCIUM
     Dosage: 0.3 MILLILITER, QD (2.850 IE, SUBCUTAAN, 1DD BIJ DINER)
     Route: 058
  15. TEMAZEPAM. [Concomitant]
     Active Substance: TEMAZEPAM
     Dosage: 10 MILLIGRAM (10 MG, ORAAL, ZO NODIG AN)
     Route: 048
  16. OXYCODON [Concomitant]
     Active Substance: OXYCODONE
     Dosage: 5 MILLIGRAM, Q6H (TABLET/CAPSULE 5 MG, 5 MG, ORAAL, ZN 6DD )
     Route: 048
  17. FUROSEMIDE. [Concomitant]
     Active Substance: FUROSEMIDE
     Dosage: 20 MILLIGRAM, QD (20 MG, ORAAL, 1DD)
     Route: 048
  18. FLUCONAZOL [Concomitant]
     Active Substance: FLUCONAZOLE
     Dosage: 400 MILLIGRAM, QD (400 MG, INTRAVENEUS, 1DD)
     Route: 042
  19. CASPOFUNGIN [Suspect]
     Active Substance: CASPOFUNGIN
     Dosage: 50 MILLIGRAM, QD (AFTERWARDS 1DD1 50 MG)
     Route: 042
     Dates: end: 20210301
  20. SIMVASTATINE [Concomitant]
     Active Substance: SIMVASTATIN
     Dosage: 40 MILLIGRAM, QD (40 MG, ORAAL, TNO STOP)
     Route: 048
  21. DUROGESIC [Concomitant]
     Active Substance: FENTANYL
     Dosage: 1 DOSAGE FORM, Q3D (TRANSDERMAAL, 1X PER 3 DAGEN)
     Route: 062
  22. VANCOMYCINE                        /00314401/ [Concomitant]
     Active Substance: VANCOMYCIN
     Dosage: 1.700 MG/DAG
     Route: 042
  23. CALCIUM+VITAMIN D3 [Concomitant]
     Active Substance: CALCIUM\CHOLECALCIFEROL
     Dosage: 1 DOSAGE FORM, QD (1 STUK, ORAAL, 1DD OM)
     Route: 048

REACTIONS (1)
  - Delirium [Recovered/Resolved]
